FAERS Safety Report 7025664-8 (Version None)
Quarter: 2010Q4

REPORT INFORMATION
  Report Type: 
  Country: None (occurrence: None)
  Receive Date: 20101004
  Receipt Date: 20100715
  Transmission Date: 20110411
  Serious: Yes (Hospitalization, Other)
  Sender: FDA-Public Use
  Company Number: US-BAYER-200941594NA

PATIENT
  Age: 25 Year
  Sex: Female
  Weight: 76 kg

DRUGS (17)
  1. YASMIN [Suspect]
     Indication: ORAL CONTRACEPTION
     Route: 048
     Dates: start: 20030101, end: 20050101
  2. TRIPTAN [Concomitant]
     Indication: HEADACHE
     Route: 065
     Dates: start: 20051116
  3. UNKNOWN DRUG [Concomitant]
     Indication: HEADACHE
     Route: 065
     Dates: start: 20051116
  4. LORTAB [Concomitant]
     Indication: HEADACHE
     Route: 048
  5. BACTRIM [Concomitant]
     Route: 065
     Dates: start: 20051116
  6. COUMADIN [Concomitant]
     Dosage: TOTAL DAILY DOSE: 5 MG  UNIT DOSE: 5 MG
     Route: 048
     Dates: start: 20051101
  7. COUMADIN [Concomitant]
     Dosage: STILL USING ON 26-NOV-2006
     Route: 065
  8. DILANTIN [Concomitant]
     Dosage: TOTAL DAILY DOSE: 300 MG  UNIT DOSE: 300 MG
     Route: 048
     Dates: start: 20051101
  9. FIORICET [Concomitant]
     Indication: HEADACHE
     Dosage: ONE TO TWO TABLETS P.O. Q4 HOURS
     Route: 048
     Dates: start: 20051101
  10. NORCO [Concomitant]
     Dosage: ONE TABLET P.O. Q4 HOURS
     Route: 048
     Dates: start: 20051101
  11. GABAPENTIN [Concomitant]
     Dosage: TOTAL DAILY DOSE: 1500 MG  UNIT DOSE: 1500 MG
     Route: 048
  12. METHIMAZOLE [Concomitant]
     Indication: THYROID DISORDER
     Dosage: TOTAL DAILY DOSE: 5 MG  UNIT DOSE: 5 MG
     Route: 048
  13. METHIMAZOLE [Concomitant]
     Route: 065
  14. LISINOPRIL AND HYDROCHLOROTHIAZIDE [Concomitant]
     Dosage: 20/12.5
     Route: 065
  15. PEPCID [Concomitant]
     Route: 065
  16. WARFARIN SODIUM [Concomitant]
     Indication: HYPERCOAGULATION
     Dosage: TOTAL DAILY DOSE: 9 MG  UNIT DOSE: 9 MG
     Route: 065
     Dates: start: 20051101, end: 20080701
  17. ASPIRIN [Concomitant]
     Indication: HYPERCOAGULATION
     Route: 048
     Dates: start: 20080701

REACTIONS (6)
  - APHASIA [None]
  - CEREBRAL ARTERY EMBOLISM [None]
  - CEREBRAL HAEMORRHAGE [None]
  - CONFUSIONAL STATE [None]
  - HAEMORRHAGIC STROKE [None]
  - HEADACHE [None]
